FAERS Safety Report 5222150-2 (Version None)
Quarter: 2007Q1

REPORT INFORMATION
  Report Type: 
  Country: None (occurrence: None)
  Receive Date: 20070129
  Receipt Date: 20060801
  Transmission Date: 20070707
  Serious: No
  Sender: FDA-Public Use
  Company Number: US-GLAXOSMITHKLINE-A0615127A

PATIENT
  Sex: Female

DRUGS (1)
  1. WELLBUTRIN [Suspect]
     Indication: ANXIETY
     Route: 048

REACTIONS (4)
  - ANXIETY [None]
  - BRUXISM [None]
  - INSOMNIA [None]
  - PSYCHOMOTOR HYPERACTIVITY [None]
